FAERS Safety Report 15254897 (Version 2)
Quarter: 2019Q2

REPORT INFORMATION
  Report Type: Spontaneous
  Country: US (occurrence: US)
  Receive Date: 20180808
  Receipt Date: 20190524
  Transmission Date: 20190711
  Serious: No
  Sender: FDA-Public Use
  Company Number: US-MYLANLABS-2018M1058440

PATIENT
  Age: 55 Year
  Sex: Male
  Weight: 98 kg

DRUGS (2)
  1. HYDROCHLOROTHIAZIDE. [Suspect]
     Active Substance: HYDROCHLOROTHIAZIDE
     Indication: HYPERTENSION
     Dosage: 25 MG, QD
     Route: 048
  2. AMLODIPINE BESILATE/VALSARTAN [Suspect]
     Active Substance: AMLODIPINE BESYLATE\VALSARTAN
     Indication: HYPERTENSION
     Dosage: UNK
     Route: 048

REACTIONS (6)
  - Weight decreased [Not Recovered/Not Resolved]
  - Depression [Not Recovered/Not Resolved]
  - Blood pressure decreased [Recovered/Resolved]
  - Benign neoplasm of eye [Recovered/Resolved]
  - White coat hypertension [Not Recovered/Not Resolved]
  - Asthenia [Recovered/Resolved]

NARRATIVE: CASE EVENT DATE: 201711
